FAERS Safety Report 18665948 (Version 1)
Quarter: 2020Q4

REPORT INFORMATION
  Report Type: Spontaneous
  Country: US (occurrence: US)
  Receive Date: 20201226
  Receipt Date: 20201226
  Transmission Date: 20210114
  Serious: Yes (Life-Threatening, Hospitalization, Other)
  Sender: FDA-Public Use
  Company Number: US-GLAXOSMITHKLINE-US2020GSK253795

PATIENT
  Age: 26 Year
  Sex: Female

DRUGS (1)
  1. BUPROPION. [Suspect]
     Active Substance: BUPROPION
     Indication: PRODUCT USED FOR UNKNOWN INDICATION
     Dosage: UNK

REACTIONS (13)
  - Tachypnoea [Recovered/Resolved]
  - Nystagmus [Recovered/Resolved]
  - Tachycardia [Recovered/Resolved]
  - Abdominal distension [Recovered/Resolved]
  - Intestinal dilatation [Recovered/Resolved]
  - Mental status changes [Recovered/Resolved]
  - Automatism [Recovered/Resolved]
  - Electrocardiogram QT prolonged [Recovered/Resolved]
  - Intestinal ischaemia [Recovered/Resolved]
  - Overdose [Unknown]
  - Pneumatosis intestinalis [Recovered/Resolved]
  - Gastrointestinal sounds abnormal [Recovered/Resolved]
  - Portal venous gas [Recovered/Resolved]
